FAERS Safety Report 7742981-4 (Version None)
Quarter: 2011Q3

REPORT INFORMATION
  Report Type: 
  Country: None (occurrence: None)
  Receive Date: 20110912
  Receipt Date: 20110901
  Transmission Date: 20111222
  Serious: Yes (Hospitalization)
  Sender: FDA-Public Use
  Company Number: US-JNJFOC-20110901923

PATIENT
  Sex: Female
  Weight: 70.76 kg

DRUGS (4)
  1. ADVAIR DISKUS 100/50 [Concomitant]
     Indication: RESPIRATORY DISORDER
  2. REMICADE [Suspect]
     Dosage: 1ST INFUSION
     Route: 042
  3. REMICADE [Suspect]
     Indication: ANKYLOSING SPONDYLITIS
     Dosage: 2ND INFUSION
     Route: 042
  4. REMICADE [Suspect]
     Dosage: 3RD INFUSION
     Route: 042
     Dates: start: 20110721

REACTIONS (4)
  - PNEUMONIA [None]
  - HYPOTHYROIDISM [None]
  - HYPERTENSION [None]
  - DYSPNOEA [None]
